FAERS Safety Report 9416277 (Version 7)
Quarter: 2016Q1

REPORT INFORMATION
  Report Type: Spontaneous
  Country: US (occurrence: US)
  Receive Date: 20130724
  Receipt Date: 20160111
  Transmission Date: 20160526
  Serious: Yes (Hospitalization, Disabling, Other)
  Sender: FDA-Public Use
  Company Number: US-009507513-1307USA010392

PATIENT
  Sex: Female
  Weight: 58.5 kg

DRUGS (7)
  1. FOSAMAX [Suspect]
     Active Substance: ALENDRONATE SODIUM
     Indication: OSTEOPOROSIS
     Dosage: 10 MG, UNK
     Route: 048
     Dates: start: 20001016, end: 200204
  2. FOSAMAX [Suspect]
     Active Substance: ALENDRONATE SODIUM
     Dosage: 70 MG, QW
     Route: 048
     Dates: start: 20020417, end: 20080312
  3. ALENDRONATE SODIUM. [Suspect]
     Active Substance: ALENDRONATE SODIUM
     Indication: OSTEOPOROSIS
     Dosage: 70 MG, QW
     Route: 048
     Dates: start: 20080313
  4. FOSAMAX [Suspect]
     Active Substance: ALENDRONATE SODIUM
     Dosage: UNK
  5. OSCAL [Concomitant]
     Active Substance: CALCIUM CARBONATE
     Dosage: 1 DF, QD
     Dates: start: 1999
  6. FOSAMAX [Suspect]
     Active Substance: ALENDRONATE SODIUM
     Dosage: 70 MG, UNK
     Route: 048
  7. CENTRUM SILVER [Concomitant]
     Active Substance: MINERALS\VITAMINS
     Dosage: 1 DF, QD
     Dates: start: 1999

REACTIONS (32)
  - Cardiomegaly [Unknown]
  - Blood alkaline phosphatase increased [Unknown]
  - Joint swelling [Unknown]
  - Fall [Unknown]
  - Blood albumin decreased [Unknown]
  - Back pain [Not Recovered/Not Resolved]
  - Back pain [Unknown]
  - Intramedullary rod insertion [Unknown]
  - Femur fracture [Unknown]
  - Hyperlipidaemia [Unknown]
  - Arthralgia [Unknown]
  - Diabetes mellitus [Unknown]
  - Hypercalcaemia [Unknown]
  - Low turnover osteopathy [Not Recovered/Not Resolved]
  - Spondylolisthesis [Not Recovered/Not Resolved]
  - Visual impairment [Unknown]
  - Hiatus hernia [Unknown]
  - Dizziness [Unknown]
  - Breast operation [Unknown]
  - Hypertension [Recovered/Resolved]
  - Weight decreased [Unknown]
  - Cataract operation [Unknown]
  - Arthritis [Unknown]
  - Chest pain [Unknown]
  - Asthma [Unknown]
  - Pericardial effusion [Unknown]
  - Joint injury [Unknown]
  - Gastrooesophageal reflux disease [Unknown]
  - Femur fracture [Not Recovered/Not Resolved]
  - Hyperglycaemia [Unknown]
  - Osteoarthritis [Unknown]
  - Tonsillectomy [Unknown]

NARRATIVE: CASE EVENT DATE: 2001
